FAERS Safety Report 20439715 (Version 1)
Quarter: 2022Q1

REPORT INFORMATION
  Report Type: Spontaneous
  Country: US (occurrence: None)
  Receive Date: 20220207
  Receipt Date: 20220207
  Transmission Date: 20220423
  Serious: No
  Sender: FDA-Public Use
  Company Number: None

PATIENT
  Age: 33 Year
  Sex: Female
  Weight: 133 kg

DRUGS (1)
  1. NIRMATRELVIR\RITONAVIR [Suspect]
     Active Substance: NIRMATRELVIR\RITONAVIR
     Dosage: FREQUENCY : TWICE A DAY;?
     Route: 048
     Dates: start: 20220125, end: 20220202

REACTIONS (6)
  - Pyrexia [None]
  - Cough [None]
  - Oropharyngeal pain [None]
  - Headache [None]
  - Condition aggravated [None]
  - Product taste abnormal [None]

NARRATIVE: CASE EVENT DATE: 20220202
